FAERS Safety Report 20554543 (Version 1)
Quarter: 2022Q1

REPORT INFORMATION
  Report Type: Report from Study
  Country: FR (occurrence: FR)
  Receive Date: 20220304
  Receipt Date: 20220304
  Transmission Date: 20220423
  Serious: Yes (Other)
  Sender: FDA-Public Use
  Company Number: FR-BAYER-2022A028725

PATIENT
  Age: 76 Year
  Sex: Male

DRUGS (1)
  1. REGORAFENIB [Suspect]
     Active Substance: REGORAFENIB
     Indication: Skin angiosarcoma
     Dosage: UNK

REACTIONS (4)
  - Skin angiosarcoma [None]
  - Asthenia [None]
  - Pancytopenia [Not Recovered/Not Resolved]
  - Off label use [None]
